FAERS Safety Report 13388874 (Version 2)
Quarter: 2017Q2

REPORT INFORMATION
  Report Type: Report from Study
  Country: CA (occurrence: CA)
  Receive Date: 20170331
  Receipt Date: 20170411
  Transmission Date: 20170830
  Serious: Yes (Other)
  Sender: FDA-Public Use
  Company Number: CA-UCBSA-2016010560

PATIENT
  Age: 65 Year
  Sex: Female
  Weight: 118 kg

DRUGS (4)
  1. CERTOLIZUMAB PEGOL RA [Suspect]
     Active Substance: CERTOLIZUMAB PEGOL
     Dosage: 200 MG, EV 2 WEEKS(QOW)
     Route: 058
     Dates: start: 20160330, end: 20160504
  2. CERTOLIZUMAB PEGOL RA [Suspect]
     Active Substance: CERTOLIZUMAB PEGOL
     Dosage: 200 MG, EV 2 WEEKS(QOW)
     Route: 058
     Dates: start: 20151223, end: 20160316
  3. CERTOLIZUMAB PEGOL RA [Suspect]
     Active Substance: CERTOLIZUMAB PEGOL
     Indication: RHEUMATOID ARTHRITIS
     Dosage: 400 MG, EV 2 WEEKS(QOW)
     Route: 058
     Dates: start: 20151111, end: 20151209
  4. SULFATRIM [Concomitant]
     Active Substance: SULFAMETHOXAZOLE\TRIMETHOPRIM
     Indication: NASOPHARYNGITIS

REACTIONS (7)
  - Viral upper respiratory tract infection [Recovered/Resolved]
  - Swelling face [Recovered/Resolved]
  - Tooth fracture [Recovered/Resolved]
  - Upper respiratory tract infection [Not Recovered/Not Resolved]
  - Cough [Recovered/Resolved]
  - Skin papilloma [Recovering/Resolving]
  - Facial pain [Recovered/Resolved]

NARRATIVE: CASE EVENT DATE: 201511
